FAERS Safety Report 19847290 (Version 1)
Quarter: 2021Q3

REPORT INFORMATION
  Report Type: Spontaneous
  Country: GB (occurrence: GB)
  Receive Date: 20210917
  Receipt Date: 20210917
  Transmission Date: 20211014
  Serious: Yes (Other)
  Sender: FDA-Public Use
  Company Number: GB-GLAXOSMITHKLINE-GBCH2021064149

PATIENT
  Age: 53 Year
  Sex: Female

DRUGS (4)
  1. NICORETTE SPRAY UNSPECIFIED [Suspect]
     Active Substance: NICOTINE
     Indication: SMOKING CESSATION THERAPY
     Dosage: UNK
     Route: 048
     Dates: start: 202108, end: 202108
  2. NICORETTE [Suspect]
     Active Substance: NICOTINE
     Indication: ILL-DEFINED DISORDER
     Dosage: ONE GUM
     Route: 065
     Dates: start: 202108, end: 202108
  3. VENLAFAXINE [Concomitant]
     Active Substance: VENLAFAXINE HYDROCHLORIDE
     Indication: ILL-DEFINED DISORDER
     Dosage: UNK
     Route: 065
  4. RAMIPRIL. [Concomitant]
     Active Substance: RAMIPRIL
     Indication: ILL-DEFINED DISORDER
     Dosage: UNK
     Route: 065

REACTIONS (3)
  - Dysphagia [Recovered/Resolved]
  - Sensation of foreign body [Recovered/Resolved]
  - Nausea [Recovered/Resolved]

NARRATIVE: CASE EVENT DATE: 202108
